FAERS Safety Report 19083013 (Version 2)
Quarter: 2021Q2

REPORT INFORMATION
  Report Type: Spontaneous
  Country: JP (occurrence: JP)
  Receive Date: 20210401
  Receipt Date: 20210519
  Transmission Date: 20210717
  Serious: Yes (Death, Other)
  Sender: FDA-Public Use
  Company Number: JP-OTSUKA-2021_010667

PATIENT
  Age: 21 Year
  Sex: Female
  Weight: 41 kg

DRUGS (3)
  1. ABILIFY [Suspect]
     Active Substance: ARIPIPRAZOLE
     Dosage: UNK
     Route: 048
  2. LENDORMIN [Suspect]
     Active Substance: BROTIZOLAM
     Indication: SEDATION
     Dosage: 0.25 MG, QD
     Route: 048
     Dates: start: 20201205, end: 20201222
  3. ABILIFY [Suspect]
     Active Substance: ARIPIPRAZOLE
     Indication: PSYCHOTIC DISORDER
     Dosage: 12?18MG/DAY
     Route: 048
     Dates: start: 20201205

REACTIONS (3)
  - Neuroleptic malignant syndrome [Fatal]
  - Therapy cessation [Unknown]
  - Pneumonia aspiration [Fatal]

NARRATIVE: CASE EVENT DATE: 20201222
